FAERS Safety Report 24980573 (Version 1)
Quarter: 2025Q1

REPORT INFORMATION
  Report Type: Report from Study
  Country: US (occurrence: US)
  Receive Date: 20250218
  Receipt Date: 20250218
  Transmission Date: 20250409
  Serious: Yes (Other)
  Sender: ALEXION PHARMACEUTICALS
  Company Number: US-AstraZeneca-CH-00804844A

PATIENT

DRUGS (1)
  1. BENRALIZUMAB [Suspect]
     Active Substance: BENRALIZUMAB
     Indication: Anaemia of chronic disease
     Dosage: 30 MILLION PER MILLILITRE, Q8W

REACTIONS (1)
  - Hernia [Recovered/Resolved]
